FAERS Safety Report 4708592-X (Version None)
Quarter: 2005Q3

REPORT INFORMATION
  Report Type: 
  Country: None (occurrence: None)
  Receive Date: 20050706
  Receipt Date: 20050624
  Transmission Date: 20060218
  Serious: Yes (Hospitalization, Other)
  Sender: FDA-Public Use
  Company Number: HQWYE821122SEP03

PATIENT
  Age: 52 Year
  Sex: Male
  Weight: 48 kg

DRUGS (7)
  1. RAPAMUNE [Suspect]
     Indication: PROPHYLAXIS AGAINST TRANSPLANT REJECTION
     Dosage: ORAL
     Route: 048
     Dates: start: 20030916, end: 20031031
  2. THYMOGLOBULIN [Suspect]
  3. CLONIDINE [Concomitant]
  4. CALCITRIOL [Concomitant]
  5. DOCUSATE [Concomitant]
  6. DIGOXIN [Concomitant]
  7. CALCIUM CARBONATE [Concomitant]

REACTIONS (16)
  - ACINETOBACTER INFECTION [None]
  - ANURIA [None]
  - BACTERIAL INFECTION [None]
  - CONVULSION [None]
  - CROSSMATCH COMPATIBLE [None]
  - ESCHERICHIA INFECTION [None]
  - ILEUS [None]
  - KLEBSIELLA INFECTION [None]
  - MENTAL STATUS CHANGES [None]
  - PANEL-REACTIVE ANTIBODY INCREASED [None]
  - PULMONARY EMBOLISM [None]
  - PULMONARY OEDEMA [None]
  - PYREXIA [None]
  - RENAL DISORDER [None]
  - TARDIVE DYSKINESIA [None]
  - TRANSPLANT REJECTION [None]
